FAERS Safety Report 6273422-4 (Version None)
Quarter: 2009Q3

REPORT INFORMATION
  Report Type: 
  Country: None (occurrence: None)
  Receive Date: 20090715
  Receipt Date: 20090703
  Transmission Date: 20100115
  Serious: Yes (Death, Hospitalization)
  Sender: FDA-Public Use
  Company Number: 2009-02530

PATIENT
  Age: 46 Year
  Sex: Male
  Weight: 64 kg

DRUGS (14)
  1. VELCADE [Suspect]
     Indication: MULTIPLE MYELOMA
     Dosage: 2.21 MG , INTRAVENOUS
     Route: 042
     Dates: start: 20090605, end: 20090615
  2. TARDYFERON  (FERROUS SULFATE) [Concomitant]
  3. ALLOPURINOL [Concomitant]
  4. PIROMIDIC ACID (PIROMIDIC ACID) [Concomitant]
  5. THIOCTIC ACID (THIOCTIC ACID) [Concomitant]
  6. ESSENTIALE (VITAMINS NOS) [Concomitant]
  7. NEURORUBIN (PYRIDOXINE HYDROCHLORIDE, THIAMINE MONONITRATE, CYANOCOBAL [Concomitant]
  8. CARBAMAZEPINE [Concomitant]
  9. LORNOXICAM (LORNOXICAM) [Concomitant]
  10. DIPHENHYDRAMINE (DIPHENHYRDAMINE) [Concomitant]
  11. LEVOFLOXACIN [Concomitant]
  12. MEROPENEM (MEROPENEM) [Concomitant]
  13. ANALGIN (METAMIZOLE SODIUM) [Concomitant]
  14. DEXAMETHASONE [Concomitant]

REACTIONS (8)
  - BRAIN INJURY [None]
  - BRAIN OEDEMA [None]
  - CEREBROVASCULAR DISORDER [None]
  - COGNITIVE DISORDER [None]
  - ENCEPHALOPATHY [None]
  - METABOLIC SYNDROME [None]
  - MULTI-ORGAN FAILURE [None]
  - POLYNEUROPATHY [None]
